FAERS Safety Report 25282593 (Version 1)
Quarter: 2025Q2

REPORT INFORMATION
  Report Type: Spontaneous
  Country: US (occurrence: US)
  Receive Date: 20250508
  Receipt Date: 20250508
  Transmission Date: 20250716
  Serious: Yes (Death, Hospitalization, Other)
  Sender: ASTELLAS
  Company Number: US-ASTELLAS-2025-AER-024609

PATIENT
  Age: 72 Year
  Sex: Male

DRUGS (4)
  1. TACROLIMUS [Suspect]
     Active Substance: TACROLIMUS
     Indication: Liver transplant
     Route: 065
  2. TACROLIMUS [Suspect]
     Active Substance: TACROLIMUS
     Route: 065
  3. TACROLIMUS [Suspect]
     Active Substance: TACROLIMUS
     Dosage: LOW DOSE TACROLIMUS
     Route: 065
  4. EVEROLIMUS [Concomitant]
     Active Substance: EVEROLIMUS
     Indication: Liver transplant
     Dosage: TARGET TROUGH LEVEL 3-7
     Route: 065

REACTIONS (6)
  - Hepatic angiosarcoma [Fatal]
  - Pneumothorax [Fatal]
  - Metastases to lung [Fatal]
  - Cytomegalovirus viraemia [Unknown]
  - Renal tubular acidosis [Unknown]
  - Chronic kidney disease [Unknown]
